FAERS Safety Report 4872122-2 (Version None)
Quarter: 2005Q4

REPORT INFORMATION
  Report Type: 
  Country: None (occurrence: None)
  Receive Date: 20051230
  Receipt Date: 20051219
  Transmission Date: 20060501
  Serious: Yes (Other)
  Sender: FDA-Public Use
  Company Number: 2005171207

PATIENT
  Sex: Male
  Weight: 68.0396 kg

DRUGS (4)
  1. XANAX [Suspect]
     Indication: ANXIETY
  2. CELEBREX [Suspect]
     Indication: ARTHRITIS
     Dosage: 100 MG (100 MG, 1 IN 1 D)
  3. VIAGRA [Suspect]
     Indication: ERECTILE DYSFUNCTION
  4. DOXEPIN HCL [Concomitant]

REACTIONS (3)
  - DRUG INEFFECTIVE [None]
  - MENTAL DISORDER [None]
  - ROSACEA [None]
